FAERS Safety Report 13922846 (Version 6)
Quarter: 2018Q2

REPORT INFORMATION
  Report Type: Spontaneous
  Country: US (occurrence: US)
  Receive Date: 20170830
  Receipt Date: 20180620
  Transmission Date: 20180711
  Serious: No
  Sender: FDA-Public Use
  Company Number: US-ASTRAZENECA-2017SE87766

PATIENT
  Age: 89 Year
  Sex: Female
  Weight: 46.7 kg

DRUGS (12)
  1. SYMBICORT [Suspect]
     Active Substance: BUDESONIDE\FORMOTEROL FUMARATE DIHYDRATE
     Indication: FIBROSIS
     Dosage: 80/4.5UG, UNKNOWN FREQUENCY UNKNOWN
     Route: 055
     Dates: start: 2016
  2. COUMADIN [Concomitant]
     Active Substance: WARFARIN SODIUM
     Indication: ATRIAL FIBRILLATION
     Route: 048
  3. AMLODIPINE [Concomitant]
     Active Substance: AMLODIPINE BESYLATE
     Route: 048
  4. SYMBICORT [Suspect]
     Active Substance: BUDESONIDE\FORMOTEROL FUMARATE DIHYDRATE
     Indication: ATELECTASIS
     Dosage: 80/4.5UG, UNKNOWN FREQUENCY UNKNOWN
     Route: 055
     Dates: start: 2016
  5. SYMBICORT [Suspect]
     Active Substance: BUDESONIDE\FORMOTEROL FUMARATE DIHYDRATE
     Indication: ATELECTASIS
     Dosage: 80/4.5UG, 2 PUFFS, TWO TIMES A DAY UNKNOWN
     Route: 055
     Dates: start: 2017, end: 20170824
  6. SYNTHROID [Concomitant]
     Active Substance: LEVOTHYROXINE SODIUM
     Indication: HYPOTHYROIDISM
     Route: 048
  7. SYMBICORT [Suspect]
     Active Substance: BUDESONIDE\FORMOTEROL FUMARATE DIHYDRATE
     Indication: ASTHMA
     Dosage: 80/4.5UG, 2 PUFFS, TWO TIMES A DAY UNKNOWN
     Route: 055
     Dates: start: 2017, end: 20170824
  8. SYMBICORT [Suspect]
     Active Substance: BUDESONIDE\FORMOTEROL FUMARATE DIHYDRATE
     Indication: ASTHMA
     Dosage: 80/4.5UG, UNKNOWN FREQUENCY UNKNOWN
     Route: 055
     Dates: start: 2016
  9. SYMBICORT [Suspect]
     Active Substance: BUDESONIDE\FORMOTEROL FUMARATE DIHYDRATE
     Indication: FIBROSIS
     Dosage: 80/4.5UG, 2 PUFFS, TWO TIMES A DAY UNKNOWN
     Route: 055
     Dates: start: 2017, end: 20170824
  10. SYNTHROID [Concomitant]
     Active Substance: LEVOTHYROXINE SODIUM
     Indication: HYPOTHYROIDISM
     Route: 048
  11. LOSARTAN. [Concomitant]
     Active Substance: LOSARTAN
     Indication: BLOOD PRESSURE ABNORMAL
     Route: 048
  12. COUMADIN [Concomitant]
     Active Substance: WARFARIN SODIUM
     Indication: ATRIAL FIBRILLATION
     Route: 048

REACTIONS (27)
  - Diarrhoea [Unknown]
  - Oesophageal stenosis [Unknown]
  - Oropharyngeal pain [Recovered/Resolved]
  - Throat irritation [Unknown]
  - Product use in unapproved indication [Unknown]
  - Off label use [Unknown]
  - Product quality issue [Unknown]
  - Dyspnoea [Unknown]
  - Weight decreased [Not Recovered/Not Resolved]
  - Aspiration [Unknown]
  - Cellulitis [Recovered/Resolved]
  - Body height decreased [Unknown]
  - Choking [Unknown]
  - Cough [Unknown]
  - Incorrect dose administered [Unknown]
  - Drug ineffective [Unknown]
  - Dysphagia [Recovered/Resolved]
  - Asthenia [Unknown]
  - Wrong technique in product usage process [Unknown]
  - Wheezing [Unknown]
  - Infected skin ulcer [Unknown]
  - Wound [Recovered/Resolved]
  - Intentional product misuse [Unknown]
  - Nasopharyngitis [Unknown]
  - Vomiting [Unknown]
  - Regurgitation [Recovering/Resolving]
  - Drug hypersensitivity [Unknown]

NARRATIVE: CASE EVENT DATE: 2017
